FAERS Safety Report 15657543 (Version 1)
Quarter: 2018Q4

REPORT INFORMATION
  Report Type: Spontaneous
  Country: US (occurrence: US)
  Receive Date: 20181126
  Receipt Date: 20181126
  Transmission Date: 20190205
  Serious: No
  Sender: FDA-Public Use
  Company Number: US-NOVOPROD-584181

PATIENT
  Age: 63 Year
  Sex: Female

DRUGS (3)
  1. STELARA [Concomitant]
     Active Substance: USTEKINUMAB
  2. NOVOLOG MIX 70/30 [Suspect]
     Active Substance: INSULIN ASPART
     Indication: TYPE 2 DIABETES MELLITUS
     Dosage: UNK
     Route: 058
     Dates: start: 2016
  3. CURCUMEN [Concomitant]

REACTIONS (10)
  - Pain in extremity [Unknown]
  - Peripheral swelling [Unknown]
  - Intentional dose omission [Recovered/Resolved]
  - Blood glucose increased [Recovered/Resolved]
  - Arthralgia [Unknown]
  - Parosmia [Unknown]
  - Memory impairment [Recovering/Resolving]
  - Dysgeusia [Unknown]
  - Fluid retention [Recovering/Resolving]
  - Product dose omission [Recovered/Resolved]

NARRATIVE: CASE EVENT DATE: 2017
